FAERS Safety Report 25288404 (Version 1)
Quarter: 2025Q2

REPORT INFORMATION
  Report Type: Spontaneous
  Country: US (occurrence: None)
  Receive Date: 20250509
  Receipt Date: 20250509
  Transmission Date: 20250716
  Serious: No
  Sender: INCYTE
  Company Number: US-INCYTE CORPORATION-2025IN004652

PATIENT
  Age: 78 Year

DRUGS (1)
  1. JAKAFI [Suspect]
     Active Substance: RUXOLITINIB
     Indication: Myelofibrosis
     Dosage: 15 MILLIGRAM, BID

REACTIONS (5)
  - Arthritis [Unknown]
  - Rash macular [Unknown]
  - Decreased activity [Unknown]
  - White blood cell count decreased [Unknown]
  - Heart valve incompetence [Unknown]
